FAERS Safety Report 13510111 (Version 1)
Quarter: 2017Q2

REPORT INFORMATION
  Report Type: Spontaneous
  Country: DE (occurrence: DE)
  Receive Date: 20170503
  Receipt Date: 20170503
  Transmission Date: 20170830
  Serious: Yes (Disabling, Other)
  Sender: FDA-Public Use
  Company Number: DE-BAYER-2017-078708

PATIENT
  Sex: Female

DRUGS (1)
  1. CIPROFLOXACIN. [Suspect]
     Active Substance: CIPROFLOXACIN
     Indication: CYSTITIS
     Dosage: 500 MG, BID
     Route: 048

REACTIONS (12)
  - Joint crepitation [None]
  - Eye pain [None]
  - Connective tissue disorder [None]
  - Walking disability [Recovering/Resolving]
  - Speech disorder [None]
  - Night sweats [None]
  - Ocular discomfort [None]
  - Pain [None]
  - Myalgia [None]
  - Tendon disorder [None]
  - Disturbance in attention [None]
  - Feeling abnormal [None]
